FAERS Safety Report 5844862-X (Version None)
Quarter: 2008Q3

REPORT INFORMATION
  Report Type: 
  Country: None (occurrence: None)
  Receive Date: 20080814
  Receipt Date: 20080805
  Transmission Date: 20090109
  Serious: Yes (Other)
  Sender: FDA-Public Use
  Company Number: US-AMGEN-US299554

PATIENT
  Sex: Male

DRUGS (4)
  1. ENBREL [Suspect]
     Indication: RHEUMATOID ARTHRITIS
     Route: 058
     Dates: start: 20021025
  2. ASPIRIN [Concomitant]
     Route: 048
  3. IBUPROFEN [Concomitant]
     Route: 048
     Dates: start: 20000101
  4. ACTONEL [Concomitant]
     Route: 065

REACTIONS (1)
  - TUBERCULIN TEST POSITIVE [None]
